FAERS Safety Report 8186180-3 (Version None)
Quarter: 2012Q1

REPORT INFORMATION
  Report Type: 
  Country: None (occurrence: None)
  Receive Date: 20120306
  Receipt Date: 20120229
  Transmission Date: 20120608
  Serious: No
  Sender: FDA-Public Use
  Company Number: US-PFIZER INC-2011302259

PATIENT
  Sex: Female
  Weight: 99.773 kg

DRUGS (2)
  1. EFFEXOR XR [Suspect]
     Indication: POST-TRAUMATIC STRESS DISORDER
  2. EFFEXOR XR [Suspect]
     Indication: DEPRESSION
     Dosage: 75 MG, 2X/DAY
     Route: 048
     Dates: end: 20110101

REACTIONS (4)
  - TREMOR [None]
  - ANXIETY [None]
  - NERVOUSNESS [None]
  - WITHDRAWAL SYNDROME [None]
